FAERS Safety Report 15743551 (Version 2)
Quarter: 2019Q1

REPORT INFORMATION
  Report Type: Report from Study
  Country: None (occurrence: US)
  Receive Date: 20181220
  Receipt Date: 20190109
  Transmission Date: 20190417
  Serious: Yes (Other)
  Sender: FDA-Public Use
  Company Number: US-ABBVIE-18K-163-2598130-00

PATIENT
  Age: 53 Year
  Sex: Female
  Weight: 82.63 kg

DRUGS (5)
  1. PENTASA [Concomitant]
     Active Substance: MESALAMINE
     Indication: INFLAMMATION
  2. METFORMIN [Concomitant]
     Active Substance: METFORMIN HYDROCHLORIDE
     Indication: PAIN
  3. HUMIRA [Suspect]
     Active Substance: ADALIMUMAB
     Indication: CROHN^S DISEASE
     Route: 058
     Dates: start: 201507, end: 201811
  4. CELEBREX [Concomitant]
     Active Substance: CELECOXIB
     Indication: INFLAMMATION
  5. ENTYVIO [Concomitant]
     Active Substance: VEDOLIZUMAB
     Indication: CROHN^S DISEASE

REACTIONS (11)
  - Feeding disorder [Recovered/Resolved]
  - Gastrointestinal tract irritation [Recovering/Resolving]
  - Intestinal obstruction [Recovered/Resolved]
  - Fluid intake reduced [Recovered/Resolved]
  - Intestinal obstruction [Recovered/Resolved]
  - Fluid intake reduced [Recovered/Resolved]
  - Drug ineffective [Not Recovered/Not Resolved]
  - Fluid intake reduced [Recovered/Resolved]
  - Feeding disorder [Recovered/Resolved]
  - Feeding disorder [Recovered/Resolved]
  - Intestinal obstruction [Recovered/Resolved]

NARRATIVE: CASE EVENT DATE: 2018
